FAERS Safety Report 23923309 (Version 2)
Quarter: 2024Q3

REPORT INFORMATION
  Report Type: Spontaneous
  Country: US (occurrence: US)
  Receive Date: 20240531
  Receipt Date: 20240723
  Transmission Date: 20241017
  Serious: No
  Sender: Haleon PLC
  Company Number: US-HALEON-2179171

PATIENT
  Age: 68 Year
  Sex: Male

DRUGS (1)
  1. NICODERM CQ [Suspect]
     Active Substance: NICOTINE
     Indication: Smoking cessation therapy
     Dosage: EXPDATE:202607EXPDATE:202607

REACTIONS (2)
  - Erythema [Not Recovered/Not Resolved]
  - Pruritus [Unknown]
